FAERS Safety Report 5274066-3 (Version None)
Quarter: 2007Q1

REPORT INFORMATION
  Report Type: 
  Country: None (occurrence: None)
  Receive Date: 20070323
  Receipt Date: 20070315
  Transmission Date: 20070707
  Serious: Yes (Disabling)
  Sender: FDA-Public Use
  Company Number: US-MERCK-0701USA05072

PATIENT
  Age: 63 Year
  Sex: Male

DRUGS (11)
  1. JANUVIA [Suspect]
     Indication: DIABETES MELLITUS NON-INSULIN-DEPENDENT
     Route: 048
     Dates: start: 20070101, end: 20070302
  2. JANUVIA [Suspect]
     Route: 048
     Dates: start: 20070129, end: 20070129
  3. JANUVIA [Suspect]
     Route: 048
     Dates: start: 20070310
  4. JANUVIA [Suspect]
     Route: 048
     Dates: start: 20070314, end: 20070314
  5. CELEBREX [Concomitant]
     Route: 065
  6. LEVEMIR [Concomitant]
     Route: 065
  7. NOVOLOG [Concomitant]
     Route: 065
  8. LIPITOR [Concomitant]
     Route: 065
  9. [THERAPY UNSPECIFIED] [Concomitant]
     Route: 065
  10. GLIPIZIDE [Concomitant]
     Route: 065
  11. STAY AWAKE [Concomitant]
     Route: 065

REACTIONS (8)
  - ADVERSE EVENT [None]
  - DISTURBANCE IN ATTENTION [None]
  - DRUG DOSE OMISSION [None]
  - HEADACHE [None]
  - INAPPROPRIATE SCHEDULE OF DRUG ADMINISTRATION [None]
  - OVERDOSE [None]
  - SOMNOLENCE [None]
  - THERAPEUTIC RESPONSE UNEXPECTED [None]
